FAERS Safety Report 16726969 (Version 1)
Quarter: 2019Q3

REPORT INFORMATION
  Report Type: Spontaneous
  Country: IN (occurrence: IN)
  Receive Date: 20190821
  Receipt Date: 20190821
  Transmission Date: 20191005
  Serious: Yes (Other)
  Sender: FDA-Public Use
  Company Number: IN-ABBVIE-19K-078-2887283-00

PATIENT

DRUGS (2)
  1. FORANE [Suspect]
     Active Substance: ISOFLURANE
     Indication: ANAESTHESIA
     Route: 055
  2. FORANE [Suspect]
     Active Substance: ISOFLURANE
     Route: 055

REACTIONS (2)
  - Unwanted awareness during anaesthesia [Recovered/Resolved]
  - Product odour abnormal [Unknown]
